FAERS Safety Report 21400959 (Version 2)
Quarter: 2022Q4

REPORT INFORMATION
  Report Type: Report from Study
  Country: CO (occurrence: CO)
  Receive Date: 20221003
  Receipt Date: 20221205
  Transmission Date: 20230112
  Serious: Yes (Hospitalization, Other)
  Sender: FDA-Public Use
  Company Number: CO-ABBVIE-4134522

PATIENT
  Age: 65 Year
  Sex: Male

DRUGS (2)
  1. ZEMPLAR [Suspect]
     Active Substance: PARICALCITOL
     Indication: Chronic kidney disease
     Route: 042
     Dates: start: 20220120, end: 20220917
  2. ZEMPLAR [Suspect]
     Active Substance: PARICALCITOL
     Indication: Chronic kidney disease
     Dosage: START DATE WAS 2022
     Route: 042
     Dates: end: 20221122

REACTIONS (5)
  - Infarction [Recovering/Resolving]
  - Malaise [Recovering/Resolving]
  - Arterial occlusive disease [Recovering/Resolving]
  - Cardiac disorder [Recovering/Resolving]
  - Malaise [Unknown]

NARRATIVE: CASE EVENT DATE: 20220901
